FAERS Safety Report 4381956-2 (Version None)
Quarter: 2004Q2

REPORT INFORMATION
  Report Type: 
  Country: None (occurrence: None)
  Receive Date: 20040615
  Receipt Date: 20040607
  Transmission Date: 20050107
  Serious: No
  Sender: FDA-Public Use
  Company Number: A001-002-006100

PATIENT
  Age: 85 Year
  Sex: Male

DRUGS (10)
  1. ARICEPT [Suspect]
     Dosage: SEE IMAGE
     Route: 048
     Dates: start: 20040401, end: 20040517
  2. ARICEPT [Suspect]
     Dosage: SEE IMAGE
     Route: 048
     Dates: start: 20040518, end: 20040602
  3. ARICEPT [Suspect]
     Dosage: SEE IMAGE
     Route: 048
     Dates: start: 20040603
  4. MICARDIS [Concomitant]
  5. LASIX [Concomitant]
  6. VITAMIN E [Concomitant]
  7. ZOCOR [Concomitant]
  8. ASPIRIN [Concomitant]
  9. RESTORIL [Concomitant]
  10. SYNTHROID [Concomitant]

REACTIONS (2)
  - ELECTROCARDIOGRAM QT PROLONGED [None]
  - VENTRICULAR EXTRASYSTOLES [None]
